FAERS Safety Report 9196815 (Version 2)
Quarter: 2013Q1

REPORT INFORMATION
  Report Type: Report from Study
  Country: CN (occurrence: CN)
  Receive Date: 20130328
  Receipt Date: 20130328
  Transmission Date: 20140127
  Serious: Yes (Hospitalization)
  Sender: FDA-Public Use
  Company Number: CN-009507513-0912CHN00008

PATIENT
  Age: 71 Year
  Sex: Female
  Weight: 56 kg

DRUGS (13)
  1. NIACIN (+) LAROPIPRANT [Suspect]
     Indication: HIGH DENSITY LIPOPROTEIN DECREASED
     Dosage: 1 G/20 MG TABLET, 2 TABLETS QD
     Route: 048
     Dates: start: 20080216, end: 20080229
  2. NIACIN (+) LAROPIPRANT [Suspect]
     Route: 048
     Dates: start: 20080324, end: 20080508
  3. VYTORIN [Suspect]
     Indication: HYPERCHOLESTEROLAEMIA
     Dosage: 10-40MG, QD
     Route: 048
     Dates: start: 20071115, end: 20080229
  4. VYTORIN [Suspect]
     Dosage: 10-40MG, QD
     Route: 048
     Dates: start: 20080324, end: 20080522
  5. VYTORIN [Suspect]
     Dosage: 10-40MG, QD
     Route: 048
     Dates: start: 20080703, end: 20090928
  6. ZOCOR [Suspect]
     Indication: HYPERCHOLESTEROLAEMIA
     Dosage: 40 MG, QD
     Route: 048
     Dates: start: 20071016, end: 20071114
  7. MK-0524 [Suspect]
     Indication: HIGH DENSITY LIPOPROTEIN DECREASED
     Dosage: 20MG-1
     Route: 048
     Dates: start: 20071213
  8. MK-0524 [Suspect]
     Dosage: 40MG-2
     Route: 048
     Dates: end: 20080215
  9. ASPIRIN [Concomitant]
     Route: 048
  10. ISOSORBIDE MONONITRATE [Concomitant]
     Route: 048
  11. ACARBOSE [Concomitant]
     Route: 048
  12. INSULIN [Concomitant]
  13. METOPROLOL [Concomitant]

REACTIONS (1)
  - Drug-induced liver injury [Recovered/Resolved]
